APPROVED DRUG PRODUCT: ALPRAZOLAM
Active Ingredient: ALPRAZOLAM
Strength: 0.5MG
Dosage Form/Route: TABLET, EXTENDED RELEASE;ORAL
Application: A078387 | Product #001 | TE Code: AB
Applicant: AMNEAL PHARMACEUTICALS NY LLC
Approved: May 30, 2008 | RLD: No | RS: No | Type: RX